FAERS Safety Report 5298671-3 (Version None)
Quarter: 2007Q2

REPORT INFORMATION
  Report Type: 
  Country: None (occurrence: None)
  Receive Date: 20070417
  Receipt Date: 20070404
  Transmission Date: 20071010
  Serious: Yes (Other)
  Sender: FDA-Public Use
  Company Number: PHFR2007GB01245

PATIENT
  Age: 57 Year
  Sex: Male
  Weight: 96 kg

DRUGS (2)
  1. VALSARTAN AND HYDROCHLOROTHIAZIDE [Suspect]
     Indication: HYPERTENSION
     Route: 048
     Dates: start: 20051212, end: 20070320
  2. AMLODIPINE MALEATE [Concomitant]
     Indication: HYPERTENSION
     Dosage: 5MG / DAY
     Route: 048
     Dates: start: 20051202, end: 20070212

REACTIONS (5)
  - BURNING SENSATION [None]
  - DRY MOUTH [None]
  - ERECTILE DYSFUNCTION [None]
  - GINGIVAL SWELLING [None]
  - GYNAECOMASTIA [None]
